FAERS Safety Report 7742714-1 (Version None)
Quarter: 2011Q3

REPORT INFORMATION
  Report Type: 
  Country: None (occurrence: None)
  Receive Date: 20110912
  Receipt Date: 20110831
  Transmission Date: 20111222
  Serious: Yes (Hospitalization)
  Sender: FDA-Public Use
  Company Number: US-UCBSA-039148

PATIENT
  Sex: Female
  Weight: 61.3 kg

DRUGS (3)
  1. CIMZIA [Suspect]
     Indication: CROHN'S DISEASE
     Route: 058
     Dates: start: 20100927
  2. OMEPRAZOLE [Concomitant]
     Route: 048
     Dates: start: 20100101
  3. SYNTHROID [Concomitant]
     Dates: start: 19710101

REACTIONS (1)
  - VIITH NERVE PARALYSIS [None]
